FAERS Safety Report 6337049-8 (Version None)
Quarter: 2009Q3

REPORT INFORMATION
  Report Type: 
  Country: None (occurrence: None)
  Receive Date: 20090831
  Receipt Date: 20090819
  Transmission Date: 20100115
  Serious: Yes (Death)
  Sender: FDA-Public Use
  Company Number: OPER20090077

PATIENT
  Age: 52 Year
  Sex: Male
  Weight: 141.9759 kg

DRUGS (7)
  1. OPANA ER [Suspect]
     Indication: MYALGIA
     Dosage: 30 MG, Q12H, PER ORAL
     Route: 048
     Dates: start: 20090202, end: 20090201
  2. OPANA ER [Suspect]
     Indication: RHEUMATOID ARTHRITIS
     Dosage: 30 MG, Q12H, PER ORAL
     Route: 048
     Dates: start: 20090202, end: 20090201
  3. FLUOXETINE [Suspect]
     Indication: DEPRESSION
     Dosage: 40 MG, DAILY, PER ORAL
     Route: 048
     Dates: start: 20071008, end: 20090201
  4. LISINOPRIL AND HYDROCHLOROTHIAZIDE [Concomitant]
  5. NABUMETOME [Concomitant]
  6. LORATADINE [Concomitant]
  7. ANDRODERM [Concomitant]

REACTIONS (7)
  - DEATH OF RELATIVE [None]
  - DRUG TOXICITY [None]
  - HEPATIC CONGESTION [None]
  - LUNG NEOPLASM [None]
  - OBESITY [None]
  - PAIN [None]
  - PULMONARY CONGESTION [None]
